FAERS Safety Report 7048662-7 (Version None)
Quarter: 2010Q4

REPORT INFORMATION
  Report Type: 
  Country: None (occurrence: None)
  Receive Date: 20101018
  Receipt Date: 20101005
  Transmission Date: 20110411
  Serious: Yes (Other)
  Sender: FDA-Public Use
  Company Number: IT-BAYER-201041790GPV

PATIENT
  Age: 83 Year
  Sex: Female

DRUGS (2)
  1. REFLUDAN [Suspect]
     Indication: PRODUCT USED FOR UNKNOWN INDICATION
  2. UNFRACTIONED HEPARIN [Concomitant]

REACTIONS (2)
  - COAGULATION TIME PROLONGED [None]
  - DEEP VEIN THROMBOSIS [None]
